FAERS Safety Report 16059344 (Version 2)
Quarter: 2019Q1

REPORT INFORMATION
  Report Type: Report from Study
  Country: TH (occurrence: TH)
  Receive Date: 20190311
  Receipt Date: 20190314
  Transmission Date: 20190418
  Serious: Yes (Hospitalization)
  Sender: FDA-Public Use
  Company Number: TH-009507513-1810THA001981

PATIENT
  Age: 55 Year
  Sex: Male
  Weight: 47 kg

DRUGS (17)
  1. FENTANYL. [Concomitant]
     Active Substance: FENTANYL
     Indication: PAIN
     Dosage: TOTAL DAILY DOSE: 100 PATCH, FREQUENCY: OTHER
     Route: 061
     Dates: start: 20180910, end: 20180925
  2. KAPANOL [Concomitant]
     Indication: PAIN
     Dosage: TOTAL DAILY DOSE: 150 MILLIGRAM
     Route: 048
     Dates: start: 20180913, end: 20180930
  3. FENTANYL. [Concomitant]
     Active Substance: FENTANYL
     Indication: PAIN
     Dosage: TOTAL DAILY DOSE: 150 MICROGRAM, FREQUENCY: OTHER
     Route: 061
     Dates: start: 20180926, end: 20180930
  4. SENOKOT [Concomitant]
     Active Substance: SENNOSIDES
     Indication: CONSTIPATION PROPHYLAXIS
     Dosage: 15 MILLIGRAM, QD
     Route: 048
     Dates: start: 20180916, end: 20181023
  5. 5-FLUOROURACIL [Suspect]
     Active Substance: FLUOROURACIL
     Dosage: 800 MG/M2/DAY CONTINUOUS IV INFUSION ON EACH OF DAYS 1 TO 5 (120 HOURS), Q3W
     Route: 042
     Dates: start: 20181004
  6. ONSIA [Concomitant]
     Indication: PROPHYLAXIS OF NAUSEA AND VOMITING
     Dosage: 8 MILLIGRAM, BID
     Route: 048
     Dates: start: 20180911, end: 20180920
  7. CISPLATIN. [Suspect]
     Active Substance: CISPLATIN
     Dosage: 80 MG/M2, Q3W
     Route: 042
     Dates: start: 20181004
  8. EMEND [Suspect]
     Active Substance: APREPITANT
     Indication: PREMEDICATION
     Dosage: 125 MILLIGRAM, ONCE; FORMULATION: TABLET
     Route: 048
     Dates: start: 20180910, end: 20180910
  9. CISPLATIN. [Suspect]
     Active Substance: CISPLATIN
     Indication: OESOPHAGEAL CARCINOMA
     Dosage: 80 MG/M2, Q3W
     Route: 042
     Dates: start: 20180910, end: 20180910
  10. 5-FLUOROURACIL [Suspect]
     Active Substance: FLUOROURACIL
     Indication: OESOPHAGEAL CARCINOMA
     Dosage: 800 MG/M2/DAY CONTINUOUS IV INFUSION ON EACH OF DAYS 1 TO 5 (120 HOURS), Q3W
     Route: 042
     Dates: start: 20180910, end: 20180914
  11. LACTULOSE. [Concomitant]
     Active Substance: LACTULOSE
     Indication: CONSTIPATION PROPHYLAXIS
     Dosage: 30 MILLILITER DAILY, PRN
     Route: 048
     Dates: start: 20180916, end: 20181001
  12. MORPHINE [Concomitant]
     Active Substance: MORPHINE
     Indication: PAIN
     Dosage: 20 MILLIGRAM DAILY, PRN
     Route: 048
     Dates: start: 20180916
  13. BLINDED PEMBROLIZUMAB [Suspect]
     Active Substance: PEMBROLIZUMAB
     Dosage: UNK
     Route: 042
     Dates: start: 20181003
  14. 5-FLUOROURACIL [Suspect]
     Active Substance: FLUOROURACIL
     Dosage: 800 MG/M2/DAY CONTINUOUS IV INFUSION ON EACH OF DAYS 1 TO 5 (120 HOURS), Q3W
     Route: 042
     Dates: start: 20180914, end: 20180915
  15. PLASIL [Concomitant]
     Active Substance: METOCLOPRAMIDE HYDROCHLORIDE
     Indication: PROPHYLAXIS OF NAUSEA AND VOMITING
     Dosage: 10 MILLIGRAM, TID
     Route: 048
     Dates: start: 20180911, end: 20180917
  16. BLINDED PEMBROLIZUMAB [Suspect]
     Active Substance: PEMBROLIZUMAB
     Indication: OESOPHAGEAL CARCINOMA
     Dosage: UNK
     Route: 042
     Dates: start: 20180910, end: 20180910
  17. OMEPRAZOLE. [Concomitant]
     Active Substance: OMEPRAZOLE
     Indication: PROPHYLAXIS AGAINST GASTROINTESTINAL ULCER
     Dosage: 20 MILLIGRAM, QD
     Route: 048
     Dates: start: 20180916, end: 20190227

REACTIONS (1)
  - Pyrexia [Recovered/Resolved]

NARRATIVE: CASE EVENT DATE: 20181001
